FAERS Safety Report 13894753 (Version 1)
Quarter: 2017Q3

REPORT INFORMATION
  Report Type: Spontaneous
  Country: US (occurrence: US)
  Receive Date: 20170823
  Receipt Date: 20170823
  Transmission Date: 20171127
  Serious: No
  Sender: FDA-Public Use
  Company Number: PHEH2017US025953

PATIENT
  Age: 67 Year

DRUGS (1)
  1. GILENYA [Suspect]
     Active Substance: FINGOLIMOD HYDROCHLORIDE
     Indication: MULTIPLE SCLEROSIS
     Dosage: 0.5 MG, QD
     Route: 048

REACTIONS (6)
  - Visual impairment [Unknown]
  - Influenza like illness [Unknown]
  - Pain [Unknown]
  - Fatigue [Unknown]
  - Pruritus [Unknown]
  - Hypertension [Unknown]

NARRATIVE: CASE EVENT DATE: 20170724
